FAERS Safety Report 19826908 (Version 5)
Quarter: 2021Q4

REPORT INFORMATION
  Report Type: Report from Study
  Country: US (occurrence: US)
  Receive Date: 20210914
  Receipt Date: 20211214
  Transmission Date: 20220303
  Serious: No
  Sender: FDA-Public Use
  Company Number: US-NOVARTISPH-NVSC2021US207305

PATIENT
  Age: 65 Year
  Sex: Male

DRUGS (1)
  1. ENTRESTO [Suspect]
     Active Substance: SACUBITRIL\VALSARTAN
     Indication: Cardiac failure
     Dosage: 100 MG (49/51 MG)
     Route: 048
     Dates: start: 20200308

REACTIONS (2)
  - Glycosylated haemoglobin increased [Unknown]
  - Malaise [Unknown]

NARRATIVE: CASE EVENT DATE: 20200506
